FAERS Safety Report 15286980 (Version 1)
Quarter: 2018Q3

REPORT INFORMATION
  Report Type: Spontaneous
  Country: JP (occurrence: JP)
  Receive Date: 20180816
  Receipt Date: 20180816
  Transmission Date: 20181010
  Serious: Yes (Other)
  Sender: FDA-Public Use
  Company Number: JP-ALKEM LABORATORIES LIMITED-JP-ALKEM-2018-06129

PATIENT
  Age: 2 Year
  Sex: Male

DRUGS (2)
  1. LINEZOLID. [Suspect]
     Active Substance: LINEZOLID
     Indication: ENDOCARDITIS
     Dosage: 10 MG/KG, EVERY 8 HOURS
     Route: 065
  2. LINEZOLID. [Suspect]
     Active Substance: LINEZOLID
     Dosage: 30 MG/KG, QD
     Route: 065

REACTIONS (2)
  - Toxicity to various agents [Recovered/Resolved]
  - Aplasia pure red cell [Recovered/Resolved]
